FAERS Safety Report 4690689-4 (Version None)
Quarter: 2005Q2

REPORT INFORMATION
  Report Type: 
  Country: None (occurrence: None)
  Receive Date: 20050613
  Receipt Date: 20050601
  Transmission Date: 20051028
  Serious: Yes (Other)
  Sender: FDA-Public Use
  Company Number: 2005082791

PATIENT
  Age: 65 Year
  Sex: Female
  Weight: 90.7194 kg

DRUGS (3)
  1. LIPITOR [Suspect]
     Indication: BLOOD CHOLESTEROL INCREASED
     Dosage: (1 IN 1 D), ORAL
     Route: 048
     Dates: end: 20050501
  2. CAPTOPRIL [Concomitant]
  3. MAXZIDE [Concomitant]

REACTIONS (8)
  - ABASIA [None]
  - DYSPNOEA [None]
  - FATIGUE [None]
  - INSOMNIA [None]
  - MYALGIA [None]
  - NON-HODGKIN'S LYMPHOMA [None]
  - PAIN IN EXTREMITY [None]
  - WHEELCHAIR USER [None]
